FAERS Safety Report 13537728 (Version 3)
Quarter: 2020Q3

REPORT INFORMATION
  Report Type: Spontaneous
  Country: US (occurrence: US)
  Receive Date: 20170511
  Receipt Date: 20200710
  Transmission Date: 20201102
  Serious: Yes (Hospitalization)
  Sender: FDA-Public Use
  Company Number: US-ACTELION-A-NJ2017-149752

PATIENT
  Age: 72 Year
  Sex: Female
  Weight: 87.08 kg

DRUGS (12)
  1. VITAMIN D3 [Concomitant]
     Active Substance: CHOLECALCIFEROL
     Dosage: UNK
     Dates: end: 20200604
  2. BUMETANIDE. [Concomitant]
     Active Substance: BUMETANIDE
     Dosage: UNK
     Dates: end: 20200622
  3. CALCITRIOL. [Concomitant]
     Active Substance: CALCITRIOL
     Dosage: UNK
     Dates: end: 20200604
  4. ULORIC [Concomitant]
     Active Substance: FEBUXOSTAT
     Dosage: UNK
     Dates: end: 20200604
  5. WARFARIN [Concomitant]
     Active Substance: WARFARIN
  6. NIFEDIPINE. [Concomitant]
     Active Substance: NIFEDIPINE
  7. BUMEX [Concomitant]
     Active Substance: BUMETANIDE
  8. OPSUMIT [Suspect]
     Active Substance: MACITENTAN
     Indication: PULMONARY ARTERIAL HYPERTENSION
     Dosage: 10 MG, QD
     Route: 048
     Dates: start: 20150813
  9. ELIQUIS [Concomitant]
     Active Substance: APIXABAN
  10. CALCIUM CARBONATE. [Concomitant]
     Active Substance: CALCIUM CARBONATE
     Dosage: UNK
     Dates: end: 20200604
  11. OLMESARTAN MEDOXOMIL. [Concomitant]
     Active Substance: OLMESARTAN MEDOXOMIL
     Dosage: UNK
     Dates: end: 20200604
  12. POTASSIUM CHLORIDE. [Concomitant]
     Active Substance: POTASSIUM CHLORIDE
     Dosage: 20 MEQ
     Dates: end: 20200622

REACTIONS (9)
  - Hypertension [Unknown]
  - Confusional state [Recovered/Resolved]
  - Blood creatinine increased [Unknown]
  - Hypertensive emergency [Recovered/Resolved]
  - Hypoaesthesia [Recovered/Resolved]
  - Speech disorder [Recovered/Resolved]
  - Transient ischaemic attack [Recovered/Resolved]
  - Bronchitis [Unknown]
  - Bone lesion [Unknown]

NARRATIVE: CASE EVENT DATE: 20170204
